FAERS Safety Report 18084296 (Version 1)
Quarter: 2020Q3

REPORT INFORMATION
  Report Type: Spontaneous
  Country: FR (occurrence: FR)
  Receive Date: 20200729
  Receipt Date: 20200729
  Transmission Date: 20201103
  Serious: Yes (Disabling)
  Sender: FDA-Public Use
  Company Number: FR-SUN PHARMACEUTICAL INDUSTRIES LTD-2020RR-255091

PATIENT
  Age: 44 Year
  Sex: Female
  Weight: 47 kg

DRUGS (7)
  1. ZOPICLONE [Suspect]
     Active Substance: ZOPICLONE
     Indication: PRODUCT USED FOR UNKNOWN INDICATION
     Dosage: 7.5 MILLIGRAM, DAILY
     Route: 048
  2. SIVEXTRO [Suspect]
     Active Substance: TEDIZOLID PHOSPHATE
     Indication: MYCOBACTERIUM AVIUM COMPLEX INFECTION
     Dosage: 1 DOSAGE FORM, DAILY
     Route: 048
     Dates: start: 202001
  3. ETHAMBUTOL [Suspect]
     Active Substance: ETHAMBUTOL HYDROCHLORIDE
     Indication: MYCOBACTERIUM AVIUM COMPLEX INFECTION
     Dosage: 750 MILLIGRAM, DAILY
     Route: 048
     Dates: start: 202001
  4. ARIKAYCE [Suspect]
     Active Substance: AMIKACIN
     Indication: MYCOBACTERIUM AVIUM COMPLEX INFECTION
     Dosage: 1 DOSAGE FORM, DAILY
     Route: 055
     Dates: start: 202001
  5. ZAVICEFTA 2 G/0,5 G, POUDRE POUR SOLUTION A DILUER POUR PERFUSION [Suspect]
     Active Substance: AVIBACTAM SODIUM\CEFTAZIDIME
     Indication: MYCOBACTERIUM AVIUM COMPLEX INFECTION
     Dosage: 6 GRAM, DAILY
     Route: 042
     Dates: start: 202001
  6. SIRTURO [Suspect]
     Active Substance: BEDAQUILINE FUMARATE
     Indication: MYCOBACTERIUM AVIUM COMPLEX INFECTION
     Dosage: 2 DOSAGE FORM/ 3 DAY
     Route: 048
     Dates: start: 202001
  7. VENLAFAXINE [Suspect]
     Active Substance: VENLAFAXINE HYDROCHLORIDE
     Indication: DEPRESSION
     Dosage: 75 MILLIGRAM, DAILY
     Route: 048

REACTIONS (2)
  - Tinnitus [Not Recovered/Not Resolved]
  - Presbyacusis [Not Recovered/Not Resolved]

NARRATIVE: CASE EVENT DATE: 202006
